FAERS Safety Report 7921848-2 (Version None)
Quarter: 2011Q4

REPORT INFORMATION
  Report Type: 
  Country: None (occurrence: None)
  Receive Date: 20111117
  Receipt Date: 20111105
  Transmission Date: 20120403
  Serious: No
  Sender: FDA-Public Use
  Company Number: US-B.I. PHARMACEUTICALS,INC./RIDGEFIELD-2011-BP-25686BP

PATIENT
  Sex: Female

DRUGS (3)
  1. MICARDIS HCT [Suspect]
     Indication: HYPERTENSION
  2. AMLODIPINE [Concomitant]
     Indication: HYPERTENSION
  3. KLOR-CON [Concomitant]
     Indication: RENAL DISORDER

REACTIONS (3)
  - PAIN IN EXTREMITY [None]
  - URINE FLOW DECREASED [None]
  - MUSCLE ATROPHY [None]
